FAERS Safety Report 10625184 (Version 1)
Quarter: 2014Q4

REPORT INFORMATION
  Report Type: Spontaneous
  Country: DE (occurrence: None)
  Receive Date: 20141202
  Receipt Date: 20141202
  Transmission Date: 20150529
  Serious: Yes (Death, Hospitalization)
  Sender: FDA-Public Use
  Company Number: NSR_01709_2014

PATIENT
  Age: 63 Year

DRUGS (2)
  1. ALLOPURINOL (ALLOPURINOL) [Suspect]
     Active Substance: ALLOPURINOL
     Indication: METASTASIS
  2. VEMURAFENIB [Suspect]
     Active Substance: VEMURAFENIB
     Indication: METASTASIS

REACTIONS (11)
  - Tachycardia [None]
  - Nausea [None]
  - Hypersensitivity [None]
  - Toxicity to various agents [None]
  - Rash maculo-papular [None]
  - Sepsis [None]
  - Fatigue [None]
  - Diarrhoea [None]
  - Leukopenia [None]
  - Staphylococcus test positive [None]
  - Pseudomonas test positive [None]
